FAERS Safety Report 10358092 (Version 3)
Quarter: 2014Q4

REPORT INFORMATION
  Report Type: Spontaneous
  Country: IT (occurrence: IT)
  Receive Date: 20140801
  Receipt Date: 20141106
  Transmission Date: 20150528
  Serious: Yes (Other)
  Sender: FDA-Public Use
  Company Number: IT-ABBVIE-14P-083-1266950-00

PATIENT
  Age: 69 Year
  Sex: Male

DRUGS (2)
  1. MACLADIN [Suspect]
     Active Substance: CLARITHROMYCIN
     Indication: SALIVARY GLAND CALCULUS
     Route: 048
     Dates: start: 20140529, end: 20140531
  2. PLAUNAC [Concomitant]
     Active Substance: OLMESARTAN MEDOXOMIL
     Indication: HYPERTENSION
     Route: 048

REACTIONS (1)
  - Erythema [Recovering/Resolving]

NARRATIVE: CASE EVENT DATE: 20140531
